FAERS Safety Report 23574848 (Version 1)
Quarter: 2024Q1

REPORT INFORMATION
  Report Type: Spontaneous
  Country: US (occurrence: US)
  Receive Date: 20240228
  Receipt Date: 20240228
  Transmission Date: 20240410
  Serious: Yes (Hospitalization)
  Sender: FDA-Public Use
  Company Number: US-AnazaoHealth Corporation-2153755

PATIENT
  Age: 50 Year
  Sex: Female
  Weight: 67.273 kg

DRUGS (10)
  1. TESTOSTERONE [Suspect]
     Active Substance: TESTOSTERONE
     Route: 058
     Dates: start: 20240130
  2. TESTOSTERONE [Suspect]
     Active Substance: TESTOSTERONE
     Route: 058
     Dates: start: 20240130
  3. ADK 10 [Concomitant]
     Route: 048
  4. PROGESTERONE [Concomitant]
     Active Substance: PROGESTERONE
  5. Diindolymethane [Concomitant]
     Route: 048
  6. IPRATROPIUM BROMIDE [Concomitant]
     Active Substance: IPRATROPIUM BROMIDE\IPRATROPIUM BROMIDE ANHYDROUS
     Route: 050
  7. MELOXICAM [Concomitant]
     Active Substance: MELOXICAM
     Route: 048
  8. MONTELUKAST [Concomitant]
     Active Substance: MONTELUKAST SODIUM
     Route: 048
  9. FLUOXETINE [Concomitant]
     Active Substance: FLUOXETINE HYDROCHLORIDE
     Route: 048
  10. ESTRADIOL [Suspect]
     Active Substance: ESTRADIOL
     Route: 058
     Dates: start: 20240130

REACTIONS (2)
  - Speech disorder [Recovered/Resolved]
  - Hemiparesis [Recovered/Resolved]

NARRATIVE: CASE EVENT DATE: 20240205
